FAERS Safety Report 4281856-2 (Version None)
Quarter: 2004Q1

REPORT INFORMATION
  Report Type: 
  Country: None (occurrence: None)
  Receive Date: 20040107
  Receipt Date: 20030826
  Transmission Date: 20041129
  Serious: Yes (Other)
  Sender: FDA-Public Use
  Company Number: A03200301959

PATIENT
  Age: 80 Year
  Sex: Female

DRUGS (2)
  1. ARIXTRA [Suspect]
     Indication: HIP SURGERY
     Dosage: SUBCUTANEOUS
     Route: 058
     Dates: start: 20030801, end: 20030801
  2. ARIXTRA [Suspect]
     Indication: THROMBOSIS PROPHYLAXIS
     Dosage: SUBCUTANEOUS
     Route: 058
     Dates: start: 20030801, end: 20030801

REACTIONS (3)
  - ANAEMIA [None]
  - INJECTION SITE HAEMORRHAGE [None]
  - POST PROCEDURAL HAEMATOMA [None]
